FAERS Safety Report 25368064 (Version 1)
Quarter: 2025Q2

REPORT INFORMATION
  Report Type: Spontaneous
  Country: US (occurrence: None)
  Receive Date: 20250527
  Receipt Date: 20250527
  Transmission Date: 20250717
  Serious: Yes (Other)
  Sender: FDA-CTU
  Company Number: None

PATIENT
  Age: 66 Year
  Sex: Female

DRUGS (1)
  1. LENALIDOMIDE [Suspect]
     Active Substance: LENALIDOMIDE
     Indication: Marginal zone lymphoma
     Route: 048
     Dates: start: 20250430

REACTIONS (3)
  - Pruritus [None]
  - Erythema [None]
  - Abdominal pain [None]

NARRATIVE: CASE EVENT DATE: 20250508
